FAERS Safety Report 21678069 (Version 1)
Quarter: 2022Q4

REPORT INFORMATION
  Report Type: Report from Study
  Country: US (occurrence: US)
  Receive Date: 20221203
  Receipt Date: 20221203
  Transmission Date: 20230113
  Serious: No
  Sender: FDA-Public Use
  Company Number: US-ABBVIE-4189582

PATIENT
  Sex: Female

DRUGS (1)
  1. HUMIRA [Suspect]
     Active Substance: ADALIMUMAB
     Indication: Ankylosing spondylitis
     Dosage: FROM STRENGTH: 40 MG
     Route: 058
     Dates: start: 20211218

REACTIONS (2)
  - Back pain [Not Recovered/Not Resolved]
  - Pain [Recovered/Resolved]
